FAERS Safety Report 7641508-5 (Version None)
Quarter: 2011Q3

REPORT INFORMATION
  Report Type: 
  Country: None (occurrence: None)
  Receive Date: 20110722
  Receipt Date: 20110713
  Transmission Date: 20111222
  Serious: Yes (Hospitalization)
  Sender: FDA-Public Use
  Company Number: 2011000423

PATIENT
  Age: 66 Year
  Sex: Female

DRUGS (1)
  1. ERLOTINIB HYDROCHLORIDE [Suspect]
     Indication: NON-SMALL CELL LUNG CANCER
     Dosage: 150 MG, UNKNOWN/D, ORAL
     Route: 048
     Dates: start: 20091120

REACTIONS (3)
  - DIABETES MELLITUS [None]
  - MENTAL STATUS CHANGES [None]
  - BLOOD TESTOSTERONE INCREASED [None]
